FAERS Safety Report 19403125 (Version 1)
Quarter: 2021Q2

REPORT INFORMATION
  Report Type: Spontaneous
  Country: ID (occurrence: ID)
  Receive Date: 20210610
  Receipt Date: 20210610
  Transmission Date: 20210717
  Serious: Yes (Death)
  Sender: FDA-Public Use
  Company Number: ID-009507513-2106IDN002025

PATIENT
  Sex: Male

DRUGS (1)
  1. KEYTRUDA [Suspect]
     Active Substance: PEMBROLIZUMAB
     Indication: MALIGNANT MELANOMA
     Dosage: UNK
     Dates: start: 20210415

REACTIONS (2)
  - Inappropriate schedule of product administration [Unknown]
  - SARS-CoV-2 test positive [Fatal]

NARRATIVE: CASE EVENT DATE: 2021
